FAERS Safety Report 23161500 (Version 3)
Quarter: 2024Q1

REPORT INFORMATION
  Report Type: Report from Study
  Country: CA (occurrence: CA)
  Receive Date: 20231108
  Receipt Date: 20240117
  Transmission Date: 20240410
  Serious: Yes (Other)
  Sender: FDA-Public Use
  Company Number: CA-JNJFOC-20210128581

PATIENT
  Age: 13 Year
  Sex: Female
  Weight: 50.3 kg

DRUGS (6)
  1. REMICADE [Suspect]
     Active Substance: INFLIXIMAB
     Indication: Crohn^s disease
     Route: 042
     Dates: start: 20201111
  2. REMICADE [Suspect]
     Active Substance: INFLIXIMAB
     Dosage: PATIENT RECEIVED 4TH INFUSION OF 250 MG REMICADE DOSE ON 19-JAN-2021
     Route: 042
     Dates: start: 20210119
  3. REMICADE [Suspect]
     Active Substance: INFLIXIMAB
     Dosage: 4.8 MG/KG
     Route: 042
  4. REMICADE [Suspect]
     Active Substance: INFLIXIMAB
     Route: 042
  5. REMICADE [Suspect]
     Active Substance: INFLIXIMAB
     Dosage: LAST DOSE WAS THE 28TH NOV 2023
     Route: 042
     Dates: end: 20231128
  6. REMICADE [Suspect]
     Active Substance: INFLIXIMAB
     Route: 042

REACTIONS (4)
  - Crohn^s disease [Not Recovered/Not Resolved]
  - Drug level abnormal [Unknown]
  - Weight increased [Unknown]
  - Off label use [Unknown]
